FAERS Safety Report 18112063 (Version 1)
Quarter: 2020Q3

REPORT INFORMATION
  Report Type: Spontaneous
  Country: US (occurrence: US)
  Receive Date: 20200805
  Receipt Date: 20200805
  Transmission Date: 20201103
  Serious: No
  Sender: FDA-Public Use
  Company Number: US-AUROBINDO-AUR-APL-2020-031397

PATIENT
  Age: 29 Year
  Sex: Female
  Weight: 86.18 kg

DRUGS (1)
  1. ELETRIPTAN HYDROBROMIDE TABLETS 40 MG [Suspect]
     Active Substance: ELETRIPTAN HYDROBROMIDE
     Indication: MIGRAINE
     Dosage: 40 MILLIGRAM, ONCE A DAY, AS NEEDED
     Route: 065
     Dates: start: 202005

REACTIONS (2)
  - Drug ineffective [Unknown]
  - Product substitution issue [Unknown]

NARRATIVE: CASE EVENT DATE: 20200618
